FAERS Safety Report 8545456-8 (Version None)
Quarter: 2012Q3

REPORT INFORMATION
  Report Type: 
  Country: None (occurrence: None)
  Receive Date: 20120727
  Receipt Date: 20111107
  Transmission Date: 20120928
  Serious: No
  Sender: FDA-Public Use
  Company Number: US-ASTRAZENECA-2011SE67539

PATIENT
  Age: 57 Year
  Sex: Male
  Weight: 74.8 kg

DRUGS (5)
  1. BUPROPION HYDROCHLORIDE [Concomitant]
     Indication: BIPOLAR DISORDER
  2. CLONAZEPAM [Concomitant]
     Indication: ANXIETY
  3. SEROQUEL [Suspect]
     Indication: BIPOLAR DISORDER
     Route: 048
     Dates: start: 20100701
  4. BUSPIRONE HCL [Concomitant]
     Indication: ANXIETY
  5. VENLAFAXINE [Concomitant]
     Indication: DEPRESSION

REACTIONS (7)
  - MEMORY IMPAIRMENT [None]
  - DECREASED APPETITE [None]
  - URINARY RETENTION [None]
  - DRUG DOSE OMISSION [None]
  - WITHDRAWAL SYNDROME [None]
  - CONSTIPATION [None]
  - SLEEP DISORDER [None]
